FAERS Safety Report 4286922-3 (Version None)
Quarter: 2004Q1

REPORT INFORMATION
  Report Type: 
  Country: None (occurrence: None)
  Receive Date: 20040204
  Receipt Date: 20040122
  Transmission Date: 20041129
  Serious: Yes (Other)
  Sender: FDA-Public Use
  Company Number: US-JNJFOC-20030906545

PATIENT
  Age: 67 Year
  Sex: Female
  Weight: 57.6068 kg

DRUGS (10)
  1. REMICADE [Suspect]
     Indication: SYSTEMIC LUPUS ERYTHEMATOSUS
     Dosage: 200 MG, INTRAVENOUS; 200 MG, INTRAVENOUS
     Route: 042
     Dates: start: 20030904
  2. REMICADE [Suspect]
     Indication: SYSTEMIC LUPUS ERYTHEMATOSUS
     Dosage: 200 MG, INTRAVENOUS; 200 MG, INTRAVENOUS
     Route: 042
     Dates: start: 20030916
  3. PREDNISONE [Concomitant]
  4. SYNTHROID [Concomitant]
  5. CALCIUM (CALCIUM) [Concomitant]
  6. MYSOLINE [Concomitant]
  7. ROCALTROL [Concomitant]
  8. SKELAXIN [Concomitant]
  9. TRIAMCINOLONE [Concomitant]
  10. MEDROL [Concomitant]

REACTIONS (7)
  - BLISTER [None]
  - CUTANEOUS LUPUS ERYTHEMATOSUS [None]
  - DERMATITIS [None]
  - LICHEN PLANUS [None]
  - RASH PAPULOSQUAMOUS [None]
  - RASH PRURITIC [None]
  - SWELLING [None]
